FAERS Safety Report 10048526 (Version 1)
Quarter: 2014Q1

REPORT INFORMATION
  Report Type: Report from Study
  Country: NL (occurrence: NL)
  Receive Date: 20140331
  Receipt Date: 20140331
  Transmission Date: 20141002
  Serious: Yes (Other)
  Sender: FDA-Public Use
  Company Number: PHHY2014NL036937

PATIENT
  Sex: Female

DRUGS (3)
  1. SANDOSTATIN LAR [Suspect]
     Indication: NEUROENDOCRINE TUMOUR
     Dosage: 30 MG PER 2 ML 1 X PER 2 WEEKS
     Route: 030
  2. SANDOSTATIN LAR [Suspect]
     Dosage: 30 MG PER 2 ML 1 X PER 2 WEEKS
     Route: 030
     Dates: start: 20140226
  3. SANDOSTATIN LAR [Suspect]
     Dosage: 30 MG PER 2 ML 1 X PER 2 WEEKS
     Route: 030
     Dates: start: 20140314

REACTIONS (2)
  - Terminal state [Not Recovered/Not Resolved]
  - Fluid retention [Not Recovered/Not Resolved]
